FAERS Safety Report 8578259 (Version 2)
Quarter: 2012Q4

REPORT INFORMATION
  Report Type: 
  Country: HU (occurrence: HU)
  Receive Date: 20120524
  Receipt Date: 20120921
  Transmission Date: 20130627
  Serious: Yes (Other)
  Sender: FDA-Public Use
  Company Number: HU-ROCHE-1067157

PATIENT
  Age: 43 Year
  Sex: Female

DRUGS (5)
  1. ROACTEMRA [Suspect]
     Indication: RHEUMATOID ARTHRITIS
     Route: 041
     Dates: start: 20120214
  2. ROACTEMRA [Suspect]
     Route: 065
     Dates: start: 20120313
  3. ROACTEMRA [Suspect]
     Route: 065
     Dates: start: 20120410
  4. ROACTEMRA [Suspect]
     Route: 065
  5. LEFLUNOMID [Concomitant]
     Route: 048

REACTIONS (3)
  - Hypersensitivity [Recovered/Resolved]
  - Visual impairment [Recovered/Resolved]
  - Headache [Recovered/Resolved]
